FAERS Safety Report 6617538-9 (Version None)
Quarter: 2010Q1

REPORT INFORMATION
  Report Type: 
  Country: None (occurrence: None)
  Receive Date: 20100308
  Receipt Date: 20100226
  Transmission Date: 20100710
  Serious: Yes (Death, Hospitalization)
  Sender: FDA-Public Use
  Company Number: IT-MPIJNJ-2010-01445

PATIENT

DRUGS (1)
  1. VELCADE [Suspect]
     Indication: MULTIPLE MYELOMA
     Dosage: 2 MG, UNK
     Route: 042
     Dates: start: 20100119, end: 20100212

REACTIONS (2)
  - ILEUS PARALYTIC [None]
  - INTESTINAL OBSTRUCTION [None]
